FAERS Safety Report 6623831-6 (Version None)
Quarter: 2010Q1

REPORT INFORMATION
  Report Type: 
  Country: None (occurrence: None)
  Receive Date: 20100310
  Receipt Date: 20100225
  Transmission Date: 20100710
  Serious: Yes (Other)
  Sender: FDA-Public Use
  Company Number: PHHY2010CA06825

PATIENT
  Sex: Female

DRUGS (9)
  1. ACLASTA [Suspect]
     Indication: OSTEOPOROSIS
     Dosage: UNK
     Dates: start: 20100202
  2. TYLENOL-500 [Concomitant]
  3. ASPIRIN [Concomitant]
     Dosage: 80 MG, UNK
  4. AVAPRO [Concomitant]
     Dosage: 300 MG, UNK
     Route: 048
  5. CALCITE D [Concomitant]
  6. GLUCOPHAGE [Concomitant]
  7. LASIX [Concomitant]
     Dosage: 20 MG, UNK
     Route: 048
  8. LIPITOR [Concomitant]
     Dosage: 40 MG, UNK
     Route: 048
  9. NEXIUM [Concomitant]

REACTIONS (4)
  - CHILLS [None]
  - FEELING ABNORMAL [None]
  - PAIN IN EXTREMITY [None]
  - PYREXIA [None]
